FAERS Safety Report 24461070 (Version 1)
Quarter: 2024Q4

REPORT INFORMATION
  Report Type: Spontaneous
  Country: ZA (occurrence: ZA)
  Receive Date: 20241018
  Receipt Date: 20241018
  Transmission Date: 20250115
  Serious: No
  Sender: ROCHE
  Company Number: ZA-ROCHE-3574795

PATIENT
  Sex: Female

DRUGS (4)
  1. RITUXIMAB [Suspect]
     Active Substance: RITUXIMAB
     Indication: Product used for unknown indication
     Route: 065
  2. METHOTREXATE SODIUM [Concomitant]
     Active Substance: METHOTREXATE SODIUM
  3. AZATHIOPRINE [Concomitant]
     Active Substance: AZATHIOPRINE
  4. PREDNISONE [Concomitant]
     Active Substance: PREDNISONE

REACTIONS (1)
  - Hypersensitivity [Unknown]
